FAERS Safety Report 17129794 (Version 2)
Quarter: 2019Q4

REPORT INFORMATION
  Report Type: Report from Study
  Country: DE (occurrence: DE)
  Receive Date: 20191209
  Receipt Date: 20191216
  Transmission Date: 20200122
  Serious: Yes (Hospitalization)
  Sender: FDA-Public Use
  Company Number: DE-MYLANLABS-2019M1119704

PATIENT
  Age: 78 Year
  Sex: Male
  Weight: 89 kg

DRUGS (13)
  1. SACUBITRIL W/VALSARTAN [Suspect]
     Active Substance: SACUBITRIL\VALSARTAN
     Indication: ACUTE MYOCARDIAL INFARCTION
     Dosage: UNK
     Route: 065
  2. METOPROLOL. [Concomitant]
     Active Substance: METOPROLOL
     Indication: HYPERTENSION
     Dosage: 24 MILLIGRAM, QD
     Route: 048
     Dates: start: 20190305
  3. RAMIPRIL. [Suspect]
     Active Substance: RAMIPRIL
     Indication: HYPERTENSION
  4. PRASUGREL. [Concomitant]
     Active Substance: PRASUGREL
     Indication: THROMBOSIS PROPHYLAXIS
     Dosage: 10 MILLIGRAM, QD
     Route: 048
     Dates: start: 20190303, end: 20190710
  5. PRASUGREL. [Suspect]
     Active Substance: PRASUGREL
     Indication: PRODUCT USED FOR UNKNOWN INDICATION
     Dosage: UNK
     Route: 065
  6. DIOVAN [Suspect]
     Active Substance: VALSARTAN
     Indication: ACUTE MYOCARDIAL INFARCTION
     Dosage: NO TREATMENT
     Route: 065
  7. ASPIRIN. [Suspect]
     Active Substance: ASPIRIN
     Indication: PRODUCT USED FOR UNKNOWN INDICATION
     Dosage: UNK
     Route: 065
  8. TORASEMID [Concomitant]
     Active Substance: TORSEMIDE
     Indication: PULMONARY CONGESTION
     Dosage: 10 MILLIGRAM, QD
     Route: 048
     Dates: start: 20190304, end: 20190710
  9. PANTOPRAZOL                        /01263204/ [Concomitant]
     Active Substance: PANTOPRAZOLE SODIUM
     Indication: PROPHYLAXIS
     Dosage: 40 MILLIGRAM, QD
     Route: 048
     Dates: start: 20190302
  10. ACETYLSALICYLIC ACID [Concomitant]
     Active Substance: ASPIRIN
     Indication: THROMBOSIS PROPHYLAXIS
     Dosage: 10 MILLIGRAM, QD
     Route: 048
     Dates: start: 20190302, end: 20190710
  11. RAMIPRIL. [Suspect]
     Active Substance: RAMIPRIL
     Indication: ACUTE MYOCARDIAL INFARCTION
     Dosage: NO TREATMENT
     Route: 065
     Dates: start: 20190302
  12. ATORVASTATIN [Concomitant]
     Active Substance: ATORVASTATIN
     Indication: PROPHYLAXIS
     Dosage: 40 MILLIGRAM, QD
     Route: 048
     Dates: start: 20190302, end: 20190710
  13. RAMIPRIL. [Concomitant]
     Active Substance: RAMIPRIL
     Indication: HYPERTENSION
     Dosage: 5 MILLIGRAM, QD
     Route: 048
     Dates: start: 20190302

REACTIONS (2)
  - Immune thrombocytopenic purpura [Unknown]
  - Thrombocytosis [Unknown]

NARRATIVE: CASE EVENT DATE: 20190710
